FAERS Safety Report 7164290-7 (Version None)
Quarter: 2010Q4

REPORT INFORMATION
  Report Type: 
  Country: None (occurrence: None)
  Receive Date: 20101203
  Receipt Date: 20101126
  Transmission Date: 20110411
  Serious: Yes (Death, Hospitalization)
  Sender: FDA-Public Use
  Company Number: HA10-220-AE

PATIENT
  Age: 75 Year
  Sex: Female
  Weight: 73 kg

DRUGS (8)
  1. NAPROXEN [Suspect]
     Indication: RHEUMATOID ARTHRITIS
     Dosage: ORAL
     Route: 048
     Dates: start: 20090213, end: 20100330
  2. CELCOXIB; IBUPROFEN/NAPROXEN; PLACEBO (CODE NOT BROKEN) [Suspect]
     Indication: RHEUMATOID ARTHRITIS
     Dosage: ORAL
     Route: 048
     Dates: start: 20090213, end: 20100330
  3. NEXIUM [Concomitant]
  4. ATENOLOL [Concomitant]
  5. HYDROCHLOROTHIAZIDE [Concomitant]
  6. AMLODIPINE [Concomitant]
  7. FERROUS SULFATE [Concomitant]
  8. GLUCOSAMINE SULFATE [Concomitant]

REACTIONS (4)
  - ATRIAL FIBRILLATION [None]
  - COMA [None]
  - HYPERTENSION [None]
  - ISCHAEMIC STROKE [None]
